FAERS Safety Report 8392354-9 (Version None)
Quarter: 2012Q2

REPORT INFORMATION
  Report Type: 
  Country: None (occurrence: None)
  Receive Date: 20120529
  Receipt Date: 20120518
  Transmission Date: 20120825
  Serious: Yes (Other)
  Sender: FDA-Public Use
  Company Number: JP-VERTEX PHARMACEUTICALS INC.-AE-2012-007677

PATIENT
  Age: 63 Year
  Sex: Female

DRUGS (10)
  1. TELAVIC (TELAPREVIR) [Suspect]
     Indication: HEPATITIS C
     Route: 048
     Dates: start: 20120320
  2. PEGINTERFERON ALFA-2B [Concomitant]
     Route: 051
     Dates: start: 20120416
  3. FEROTYM [Concomitant]
     Route: 048
  4. RIBAVIRIN [Concomitant]
     Indication: HEPATITIS C
     Route: 048
     Dates: start: 20120320, end: 20120408
  5. RIBAVIRIN [Concomitant]
     Route: 048
     Dates: start: 20120409, end: 20120430
  6. LIVALO [Concomitant]
     Route: 048
  7. EPADEL S [Concomitant]
     Route: 048
  8. CLARITIN REDITABS [Concomitant]
     Route: 048
  9. RIBAVIRIN [Concomitant]
     Route: 048
     Dates: start: 20120501
  10. PEGINTERFERON ALFA-2B [Concomitant]
     Indication: HEPATITIS C
     Route: 051
     Dates: start: 20120320, end: 20120409

REACTIONS (3)
  - ANAEMIA [None]
  - PLATELET COUNT DECREASED [None]
  - RASH [None]
